FAERS Safety Report 7320641-1 (Version None)
Quarter: 2011Q1

REPORT INFORMATION
  Report Type: 
  Country: None (occurrence: None)
  Receive Date: 20110215
  Receipt Date: 20110125
  Transmission Date: 20110831
  Serious: Yes (Other)
  Sender: FDA-Public Use
  Company Number: 2011SP003616

PATIENT
  Age: 29 Year
  Sex: Female

DRUGS (2)
  1. PEGINTERFERON ALFA-2B (PEGINTERFERON ALFA-2B / 01543001/) [Suspect]
     Indication: HEPATITIS C
     Dosage: 80 MCG;QW;SC
     Route: 058
  2. RIBAVIRIN [Concomitant]

REACTIONS (1)
  - INJECTION SITE ATROPHY [None]
